FAERS Safety Report 16473192 (Version 1)
Quarter: 2019Q2

REPORT INFORMATION
  Report Type: Spontaneous
  Country: FR (occurrence: FR)
  Receive Date: 20190625
  Receipt Date: 20190625
  Transmission Date: 20190711
  Serious: Yes (Other)
  Sender: FDA-Public Use
  Company Number: FR-GLAXOSMITHKLINE-FR2019GSK114047

PATIENT
  Sex: Female

DRUGS (2)
  1. NICOPATCH [Suspect]
     Active Substance: NICOTINE
     Indication: SMOKING CESSATION THERAPY
     Dosage: UNK (21 MG/24 H)
     Route: 062
  2. NICOTINE. [Suspect]
     Active Substance: NICOTINE
     Indication: SMOKING CESSATION THERAPY
     Dosage: 1 DF, QD (21 MG/24 H)
     Route: 062

REACTIONS (2)
  - Nicotine dependence [Unknown]
  - Product quality issue [Unknown]
